FAERS Safety Report 11585683 (Version 2)
Quarter: 2015Q4

REPORT INFORMATION
  Report Type: Spontaneous
  Country: US (occurrence: None)
  Receive Date: 20151001
  Receipt Date: 20151124
  Transmission Date: 20160304
  Serious: Yes (Hospitalization, Other)
  Sender: FDA-Public Use
  Company Number: ADR-2015-01128

PATIENT
  Age: 70 Year
  Sex: Male

DRUGS (2)
  1. BACLOFEN ORAL [Suspect]
     Active Substance: BACLOFEN
  2. LIORESAL [Suspect]
     Active Substance: BACLOFEN
     Indication: MUSCLE SPASTICITY
     Dosage: 159 MCG/DAY

REACTIONS (13)
  - Urinary tract infection [None]
  - Asthenia [None]
  - Dizziness [None]
  - Muscle spasticity [None]
  - Clostridium difficile infection [None]
  - Therapeutic response decreased [None]
  - Pain in extremity [None]
  - Post lumbar puncture syndrome [None]
  - Medical device site erosion [None]
  - Malaise [None]
  - Fatigue [None]
  - Gait disturbance [None]
  - Movement disorder [None]
